FAERS Safety Report 9139130 (Version 1)
Quarter: 2013Q1

REPORT INFORMATION
  Report Type: Report from Study
  Country: US (occurrence: US)
  Receive Date: 20130305
  Receipt Date: 20130305
  Transmission Date: 20140127
  Serious: No
  Sender: FDA-Public Use
  Company Number: US-VERTEX PHARMACEUTICALS INC.-2013-002735

PATIENT
  Age: 55 Year
  Sex: Male

DRUGS (2)
  1. INCIVEK [Suspect]
     Indication: HEPATITIS C
     Route: 065
  2. INCIVEK [Suspect]
     Indication: PRODUCT USED FOR UNKNOWN INDICATION

REACTIONS (16)
  - Insomnia [Unknown]
  - Insomnia [Unknown]
  - Irritability [Unknown]
  - Emotional disorder [Unknown]
  - Headache [Unknown]
  - Dizziness [Unknown]
  - Anaemia [Unknown]
  - Neutropenia [Unknown]
  - Thrombocytopenia [Unknown]
  - Weight decreased [Unknown]
  - Rash [Unknown]
  - Pruritus [Unknown]
  - Dermatitis [Unknown]
  - Fatigue [Unknown]
  - Fatigue [Unknown]
  - Asthenia [Unknown]
